FAERS Safety Report 13767178 (Version 1)
Quarter: 2017Q3

REPORT INFORMATION
  Report Type: Other
  Country: US (occurrence: US)
  Receive Date: 20170719
  Receipt Date: 20170719
  Transmission Date: 20171127
  Serious: No
  Sender: FDA-Public Use
  Company Number: US-LUPIN PHARMACEUTICALS INC.-2017-03137

PATIENT

DRUGS (1)
  1. DESVENLAFAXINE. [Suspect]
     Active Substance: DESVENLAFAXINE
     Indication: PRODUCT USED FOR UNKNOWN INDICATION
     Dosage: UNK
     Route: 065
     Dates: start: 20170406

REACTIONS (5)
  - Depression [Unknown]
  - Affective disorder [Unknown]
  - Emotional disorder [Unknown]
  - Depressed mood [Unknown]
  - Appetite disorder [Unknown]

NARRATIVE: CASE EVENT DATE: 20170409
